FAERS Safety Report 15262327 (Version 1)
Quarter: 2018Q3

REPORT INFORMATION
  Report Type: Spontaneous
  Country: ES (occurrence: ES)
  Receive Date: 20180809
  Receipt Date: 20180809
  Transmission Date: 20181010
  Serious: Yes (Other)
  Sender: FDA-Public Use
  Company Number: PHHY2012ES023655

PATIENT
  Age: 28 Year
  Sex: Female

DRUGS (4)
  1. PYRAZINAMID [Suspect]
     Active Substance: PYRAZINAMIDE
     Indication: TUBERCULOSIS
     Dosage: UNK
     Route: 065
  2. ISONIAZID. [Suspect]
     Active Substance: ISONIAZID
     Indication: TUBERCULOSIS
     Dosage: UNK
     Route: 065
  3. ETHAMBUTOL [Suspect]
     Active Substance: ETHAMBUTOL HYDROCHLORIDE
     Indication: TUBERCULOSIS
     Dosage: UNK
     Route: 065
  4. RIFAMPICIN [Suspect]
     Active Substance: RIFAMPIN
     Indication: TUBERCULOSIS
     Dosage: UNK
     Route: 065

REACTIONS (10)
  - Drug reaction with eosinophilia and systemic symptoms [Recovering/Resolving]
  - Rash pruritic [Recovering/Resolving]
  - Alanine aminotransferase increased [Recovering/Resolving]
  - Pyrexia [Recovering/Resolving]
  - Alveolitis [Recovering/Resolving]
  - Aspartate aminotransferase increased [Recovering/Resolving]
  - Rash [Recovering/Resolving]
  - Eosinophilia [Recovering/Resolving]
  - Malaise [Recovering/Resolving]
  - Rash maculo-papular [Recovering/Resolving]
